FAERS Safety Report 9817296 (Version 4)
Quarter: 2014Q1

REPORT INFORMATION
  Report Type: Spontaneous
  Country: ES (occurrence: ES)
  Receive Date: 20140115
  Receipt Date: 20140225
  Transmission Date: 20141002
  Serious: Yes (Other)
  Sender: FDA-Public Use
  Company Number: ES-AMGEN-ESPSP2013087346

PATIENT
  Age: 59 Year
  Sex: Female

DRUGS (2)
  1. PROLIA [Suspect]
     Indication: OSTEOPOROSIS
     Dosage: 2 UNK, UNK
     Route: 065
  2. VITAMIN D                          /00107901/ [Concomitant]

REACTIONS (20)
  - Weight decreased [Not Recovered/Not Resolved]
  - Gastric disorder [Recovered/Resolved]
  - Diarrhoea [Not Recovered/Not Resolved]
  - Cough [Not Recovered/Not Resolved]
  - Choking [Unknown]
  - Myalgia [Not Recovered/Not Resolved]
  - Feeling abnormal [Unknown]
  - Pain [Unknown]
  - Calcium metabolism disorder [Unknown]
  - Condition aggravated [Unknown]
  - Adverse event [Not Recovered/Not Resolved]
  - Urinary incontinence [Not Recovered/Not Resolved]
  - Renal disorder [Not Recovered/Not Resolved]
  - Muscular weakness [Not Recovered/Not Resolved]
  - Parosmia [Unknown]
  - Hypersensitivity [Unknown]
  - Paraesthesia [Unknown]
  - Influenza [Unknown]
  - Palpitations [Unknown]
  - Decreased appetite [Unknown]
